FAERS Safety Report 12194555 (Version 1)
Quarter: 2016Q1

REPORT INFORMATION
  Report Type: Spontaneous
  Country: US (occurrence: None)
  Receive Date: 20160318
  Receipt Date: 20160318
  Transmission Date: 20160526
  Serious: Yes (Disabling, Other)
  Sender: FDA-Public Use
  Company Number: None

PATIENT
  Age: 36 Year
  Sex: Male
  Weight: 111.13 kg

DRUGS (7)
  1. HYDROCODONE/ACETAMINOPHEN 10-325T [Suspect]
     Active Substance: ACETAMINOPHEN\HYDROCODONE
     Indication: PAIN
     Dosage: 60 PILLS 4 TIMES A DAY MOUTH
     Route: 048
     Dates: start: 20160108, end: 201602
  2. LYRICA [Concomitant]
     Active Substance: PREGABALIN
  3. HYDROCODONE [Concomitant]
     Active Substance: HYDROCODONE
  4. VENLAFAXINE [Concomitant]
     Active Substance: VENLAFAXINE HYDROCHLORIDE
  5. MELOXICAM. [Concomitant]
     Active Substance: MELOXICAM
  6. TRAZODONE [Concomitant]
     Active Substance: TRAZODONE HYDROCHLORIDE
  7. METAXALONE. [Concomitant]
     Active Substance: METAXALONE

REACTIONS (5)
  - Rash [None]
  - Dyspnoea [None]
  - Urticaria [None]
  - Drug screen positive [None]
  - Depression [None]

NARRATIVE: CASE EVENT DATE: 20160209
